FAERS Safety Report 10150452 (Version 1)
Quarter: 2014Q2

REPORT INFORMATION
  Report Type: Spontaneous
  Country: GB (occurrence: GB)
  Receive Date: 20140502
  Receipt Date: 20140502
  Transmission Date: 20141212
  Serious: Yes (Other)
  Sender: FDA-Public Use
  Company Number: GB-WATSON-2014-08733

PATIENT
  Age: 69 Year
  Sex: Female
  Weight: 112 kg

DRUGS (1)
  1. DILTIAZEM (UNKNOWN) [Suspect]
     Indication: PRODUCT USED FOR UNKNOWN INDICATION
     Dosage: UNK
     Route: 065

REACTIONS (4)
  - Sialoadenitis [Unknown]
  - Hearing impaired [Unknown]
  - Muscular weakness [Unknown]
  - Drug interaction [Unknown]
